FAERS Safety Report 19158332 (Version 1)
Quarter: 2021Q2

REPORT INFORMATION
  Report Type: Spontaneous
  Country: US (occurrence: US)
  Receive Date: 20210420
  Receipt Date: 20210420
  Transmission Date: 20210717
  Serious: No
  Sender: FDA-Public Use
  Company Number: US-ALLERGAN-2030065US

PATIENT
  Sex: Female

DRUGS (1)
  1. RISEDRONATE SODIUM DR 35MG [Suspect]
     Active Substance: RISEDRONATE SODIUM
     Indication: OSTEOPOROSIS POSTMENOPAUSAL
     Dosage: UNK

REACTIONS (1)
  - Abdominal discomfort [Not Recovered/Not Resolved]
